FAERS Safety Report 10577238 (Version 3)
Quarter: 2014Q4

REPORT INFORMATION
  Report Type: Spontaneous
  Country: US (occurrence: US)
  Receive Date: 20141111
  Receipt Date: 20141201
  Transmission Date: 20150529
  Serious: Yes (Other)
  Sender: FDA-Public Use
  Company Number: US-PFIZER INC-2014305050

PATIENT
  Age: 71 Year
  Sex: Female

DRUGS (17)
  1. NASONEX [Concomitant]
     Active Substance: MOMETASONE FUROATE
     Dosage: 50 MG, AS NEEDED
  2. ADVIL [Concomitant]
     Active Substance: IBUPROFEN
     Dosage: UNK
  3. KLOR-CON M20 [Interacting]
     Active Substance: POTASSIUM CHLORIDE
     Indication: BLOOD POTASSIUM DECREASED
     Dosage: 40 MEQ, 1X/DAY (TWO 20 MEQ ORALLY PER DAY)
     Route: 048
     Dates: start: 2012, end: 201407
  4. KLOR-CON M20 [Interacting]
     Active Substance: POTASSIUM CHLORIDE
     Dosage: 20 MEQ, 1X/DAY
     Route: 048
     Dates: start: 201407
  5. SIMVASTATIN. [Concomitant]
     Active Substance: SIMVASTATIN
     Dosage: 40 MG, 1X/DAY (1 TAB BEFORE BEDTIME)
  6. LOSARTAN -HCTZ [Concomitant]
     Dosage: 1 DF, DAILY (HYDROCHLOROTHIAZIDE-25MG, LOSARTAN POTASSIUM-100MG)
  7. CLINDAMYCIN HCL [Suspect]
     Active Substance: CLINDAMYCIN HYDROCHLORIDE
     Indication: DENTAL CARE
     Dosage: 1 DF, 1X/DAY (TOOK ONE CAPSULE A DAY FOR APPROXIMATELY 4 DAYS)
     Route: 048
     Dates: start: 2013
  8. TYLENOL [Concomitant]
     Active Substance: ACETAMINOPHEN
     Dosage: UNK
  9. SUDAFED [Concomitant]
     Active Substance: PSEUDOEPHEDRINE HYDROCHLORIDE
     Dosage: UNK
  10. KLOR-CON M20 [Interacting]
     Active Substance: POTASSIUM CHLORIDE
     Dosage: 40 MEQ, DAILY
     Dates: start: 201304
  11. METFORMIN HYDROCHLORIDE. [Concomitant]
     Active Substance: METFORMIN HYDROCHLORIDE
     Dosage: 500 MG, DAILY
  12. LASIX [Concomitant]
     Active Substance: FUROSEMIDE
     Dosage: 20 MG, AS NEEDED
  13. RANITIDINE [Concomitant]
     Active Substance: RANITIDINE\RANITIDINE HYDROCHLORIDE
     Dosage: UNK
  14. ADVIL PM [Concomitant]
     Active Substance: DIPHENHYDRAMINE CITRATE\IBUPROFEN
     Dosage: UNK
  15. MULTIVITAMINS [Concomitant]
     Active Substance: VITAMINS
  16. NAMENDA [Concomitant]
     Active Substance: MEMANTINE HYDROCHLORIDE
     Dosage: 10 MG, 2X/DAY
  17. OCUVITE 50+ [Concomitant]
     Dosage: UNK

REACTIONS (5)
  - Drug interaction [Unknown]
  - Pruritus [Not Recovered/Not Resolved]
  - Pruritus genital [Recovered/Resolved]
  - Genital haemorrhage [Recovered/Resolved]
  - Genital swelling [Recovered/Resolved]
